FAERS Safety Report 18855138 (Version 2)
Quarter: 2021Q1

REPORT INFORMATION
  Report Type: Report from Study
  Country: US (occurrence: US)
  Receive Date: 20210205
  Receipt Date: 20210304
  Transmission Date: 20210420
  Serious: Yes (Other)
  Sender: FDA-Public Use
  Company Number: US-TAIHO ONCOLOGY  INC-EU-2021-00309

PATIENT
  Age: 69 Year
  Sex: Female
  Weight: 70.51 kg

DRUGS (1)
  1. LONSURF [Suspect]
     Active Substance: TIPIRACIL HYDROCHLORIDE\TRIFLURIDINE
     Indication: COLON CANCER
     Dosage: CYCLE 1?2
     Route: 048
     Dates: start: 20210111

REACTIONS (4)
  - Ascites [Unknown]
  - Abdominal distension [Unknown]
  - Decreased appetite [Unknown]
  - Feeding disorder [Unknown]
